FAERS Safety Report 4419553-2 (Version None)
Quarter: 2004Q3

REPORT INFORMATION
  Report Type: 
  Country: None (occurrence: None)
  Receive Date: 20040809
  Receipt Date: 20040213
  Transmission Date: 20050211
  Serious: No
  Sender: FDA-Public Use
  Company Number: US-GLAXOSMITHKLINE-A0498169A

PATIENT
  Age: 51 Year
  Sex: Female

DRUGS (3)
  1. PAXIL [Suspect]
     Indication: DEPRESSION
     Dosage: 40MG PER DAY
     Route: 048
     Dates: start: 19950101
  2. PREMARIN [Concomitant]
  3. LEVOTHROID [Concomitant]

REACTIONS (5)
  - DIZZINESS [None]
  - ELECTRIC SHOCK [None]
  - EMOTIONAL DISORDER [None]
  - HEADACHE [None]
  - NAUSEA [None]
